FAERS Safety Report 5723522-X (Version None)
Quarter: 2008Q2

REPORT INFORMATION
  Report Type: 
  Country: None (occurrence: None)
  Receive Date: 20080430
  Receipt Date: 20080424
  Transmission Date: 20081010
  Serious: Yes (Other)
  Sender: FDA-Public Use
  Company Number: GB-TEVA-170744ISR

PATIENT
  Sex: Male

DRUGS (4)
  1. SERTRALINE [Suspect]
     Indication: DEPRESSION
     Route: 064
     Dates: start: 20041109, end: 20050901
  2. SERTRALINE [Suspect]
     Route: 064
     Dates: start: 20051201, end: 20060201
  3. VENLAFAXINE HCL [Suspect]
     Indication: DEPRESSION
     Route: 064
     Dates: start: 20060201, end: 20060301
  4. VENLAFAXINE HCL [Suspect]
     Route: 064
     Dates: start: 20060301

REACTIONS (5)
  - ABNORMAL PALMAR/PLANTAR CREASES [None]
  - EAR MALFORMATION [None]
  - FOETAL DAMAGE [None]
  - HEAD DEFORMITY [None]
  - POLYHYDRAMNIOS [None]
